FAERS Safety Report 7589482-4 (Version None)
Quarter: 2011Q3

REPORT INFORMATION
  Report Type: 
  Country: None (occurrence: None)
  Receive Date: 20110705
  Receipt Date: 20110622
  Transmission Date: 20111222
  Serious: Yes (Hospitalization)
  Sender: FDA-Public Use
  Company Number: US-BAYER-2011-054901

PATIENT
  Age: 79 Year
  Sex: Female
  Weight: 82 kg

DRUGS (2)
  1. CITRACAL MAXIMUM [Suspect]
     Dosage: UNK
     Route: 048
  2. SYNTHROID [Concomitant]

REACTIONS (6)
  - DYSPNOEA [None]
  - DIZZINESS [None]
  - SENSATION OF FOREIGN BODY [None]
  - COUGH [None]
  - FOREIGN BODY [None]
  - FOREIGN BODY ASPIRATION [None]
